FAERS Safety Report 5757463-9 (Version None)
Quarter: 2008Q2

REPORT INFORMATION
  Report Type: 
  Country: None (occurrence: None)
  Receive Date: 20080603
  Receipt Date: 20080528
  Transmission Date: 20081010
  Serious: Yes (Life-Threatening, Other)
  Sender: FDA-Public Use
  Company Number: FR-BOEHRINGER INGELHEIM GMBH, GERMANY-2007-FF-00901FF

PATIENT
  Sex: Female
  Weight: 78 kg

DRUGS (18)
  1. SPIRIVA [Suspect]
     Indication: CHRONIC OBSTRUCTIVE PULMONARY DISEASE
     Route: 055
     Dates: start: 20070401, end: 20070720
  2. DESLORATADINE [Concomitant]
     Route: 048
  3. FORADIL [Concomitant]
  4. ALDACTONE [Concomitant]
  5. EUPHYLLINE [Concomitant]
     Route: 048
  6. HYDROCORTISONE ROUSSEL [Concomitant]
     Indication: ADRENAL INSUFFICIENCY
  7. CORTANCYL [Concomitant]
  8. PAROXETINE HCL [Concomitant]
  9. SPORANOX [Concomitant]
     Route: 048
  10. TRIFLUCAN [Concomitant]
     Route: 048
  11. VIRLIX [Concomitant]
     Route: 048
  12. VENTOLIN [Concomitant]
     Route: 048
  13. RANIPLEX [Concomitant]
     Route: 048
  14. LASILIX [Concomitant]
  15. EFFICORT [Concomitant]
  16. LORAZEPAM [Concomitant]
  17. LORAZEPAM [Concomitant]
  18. GALIEN CERAT [Concomitant]

REACTIONS (4)
  - ANGIOEDEMA [None]
  - DERMATITIS BULLOUS [None]
  - MOUTH ULCERATION [None]
  - URTICARIA [None]
